FAERS Safety Report 6144584-4 (Version None)
Quarter: 2009Q2

REPORT INFORMATION
  Report Type: 
  Country: None (occurrence: None)
  Receive Date: 20090406
  Receipt Date: 20090325
  Transmission Date: 20091009
  Serious: Yes (Hospitalization)
  Sender: FDA-Public Use
  Company Number: FR-ELI_LILLY_AND_COMPANY-FR200901000463

PATIENT
  Sex: Male

DRUGS (11)
  1. ALIMTA [Suspect]
     Indication: NON-SMALL CELL LUNG CANCER
     Dosage: UNK, UNKNOWN
     Route: 042
     Dates: start: 20071120, end: 20080108
  2. NEULASTA [Concomitant]
     Dosage: UNK, UNKNOWN
     Route: 030
     Dates: start: 20071109, end: 20071121
  3. PLAVIX [Concomitant]
     Dosage: UNK, UNKNOWN
     Route: 065
     Dates: start: 20040101
  4. SIMVASTATIN [Concomitant]
     Dosage: UNK, UNKNOWN
     Route: 065
     Dates: start: 20040101
  5. ENDOTELON                          /00811401/ [Concomitant]
     Dosage: UNK, UNKNOWN
     Route: 065
     Dates: start: 20040101
  6. RIVOTRIL [Concomitant]
     Dosage: UNK, UNKNOWN
     Route: 065
     Dates: start: 20071101
  7. DEPAKENE [Concomitant]
     Dosage: UNK, UNKNOWN
     Route: 065
     Dates: start: 20071101
  8. SPECIAFOLDINE [Concomitant]
     Dosage: UNK, UNKNOWN
     Route: 065
     Dates: start: 20070901
  9. PREDNISOLONE [Concomitant]
     Dosage: UNK, UNKNOWN
     Route: 065
     Dates: start: 20071120
  10. PRIMPERAN /00041901/ [Concomitant]
     Dosage: UNK, UNKNOWN
     Route: 065
     Dates: start: 20071120
  11. ONDANSETRON HCL [Concomitant]
     Dosage: UNK, UNKNOWN
     Route: 065
     Dates: start: 20071120

REACTIONS (2)
  - ANGIOEDEMA [None]
  - ECZEMA [None]
